FAERS Safety Report 4344915-1 (Version None)
Quarter: 2004Q2

REPORT INFORMATION
  Report Type: 
  Country: None (occurrence: None)
  Receive Date: 20040420
  Receipt Date: 20040407
  Transmission Date: 20050107
  Serious: Yes (Other)
  Sender: FDA-Public Use
  Company Number: 2004024146

PATIENT
  Age: 64 Year
  Sex: Male

DRUGS (3)
  1. GABAPENTIN [Suspect]
     Indication: ILL-DEFINED DISORDER
     Dosage: 100 MG (DAILY), ORAL
     Route: 048
  2. AMITRIPTYLINE HCL [Suspect]
     Indication: ILL-DEFINED DISORDER
     Dosage: 10 MG (DAILY), ORAL
     Route: 048
  3. TRANSTEC (BUPRENORPHINE) [Suspect]
     Indication: PAIN
     Dosage: 140 MCG/H (DAILY)

REACTIONS (3)
  - MYOCLONIC EPILEPSY [None]
  - MYOCLONUS [None]
  - PAIN [None]
